FAERS Safety Report 6578752-4 (Version None)
Quarter: 2010Q1

REPORT INFORMATION
  Report Type: 
  Country: None (occurrence: None)
  Receive Date: 20100202
  Receipt Date: 20100118
  Transmission Date: 20100710
  Serious: Yes (Death)
  Sender: FDA-Public Use
  Company Number: 2010S1000053

PATIENT
  Age: 48 Year
  Sex: Female

DRUGS (7)
  1. ROXICODONE [Suspect]
     Dosage: PO
     Route: 048
     Dates: end: 20080101
  2. AMITRIPTYLINE HCL [Suspect]
     Dosage: PO
     Route: 048
     Dates: end: 20080101
  3. BETA BLOCKER [Suspect]
     Dosage: PO
     Route: 048
     Dates: end: 20080101
  4. TRAMADOL HCL [Suspect]
     Dosage: PO
     Route: 048
     Dates: end: 20080101
  5. TRIAMTERENE AND HYDROCHLOROTHIAZIDE [Suspect]
     Dosage: PO
     Route: 048
     Dates: end: 20080101
  6. ETHANOL [Suspect]
     Dosage: PO
     Route: 048
     Dates: end: 20080101
  7. HYDROCODONE [Suspect]
     Dosage: PO
     Route: 048
     Dates: end: 20080101

REACTIONS (1)
  - COMPLETED SUICIDE [None]
